FAERS Safety Report 8516467-3 (Version None)
Quarter: 2012Q3

REPORT INFORMATION
  Report Type: 
  Country: None (occurrence: None)
  Receive Date: 20120718
  Receipt Date: 20120713
  Transmission Date: 20120928
  Serious: No
  Sender: FDA-Public Use
  Company Number: US-PFIZER INC-2012169651

PATIENT
  Sex: Female
  Weight: 52.154 kg

DRUGS (1)
  1. SUTENT [Suspect]
     Dosage: 50 MG, 4 WEEKS ON TREATMENT FOLLOWED BY 2 WEEKS OFF
     Route: 048
     Dates: start: 20120101

REACTIONS (2)
  - SKIN FISSURES [None]
  - COUGH [None]
